FAERS Safety Report 7777498-4 (Version None)
Quarter: 2011Q3

REPORT INFORMATION
  Report Type: 
  Country: None (occurrence: None)
  Receive Date: 20110926
  Receipt Date: 20110921
  Transmission Date: 20111222
  Serious: Yes (Other)
  Sender: FDA-Public Use
  Company Number: AR-AMGEN-ARGCT2011045530

PATIENT
  Age: 82 Year
  Sex: Female

DRUGS (7)
  1. AMLODIPINE [Concomitant]
     Dosage: 5 MG, QD
     Route: 048
     Dates: start: 19960101
  2. DENOSUMAB [Suspect]
     Indication: METASTASES TO BONE
     Dosage: UNK
     Dates: start: 20090806
  3. CALCIUM CARBONATE [Concomitant]
     Dosage: 500 MG, QD
     Route: 048
     Dates: start: 20070126
  4. RANITIDINE [Concomitant]
     Dosage: 300 MG, QD
     Route: 048
     Dates: start: 20081130
  5. UREA [Concomitant]
     Dosage: 40 %, BID
     Route: 061
     Dates: start: 20110331
  6. VITAMIN D [Concomitant]
     Dosage: 400 IU, QD
     Route: 048
     Dates: start: 20070126
  7. CAPECITABINE [Concomitant]
     Indication: BREAST CANCER
     Dosage: 1000 MG, BID
     Route: 048
     Dates: start: 20110301

REACTIONS (1)
  - OSTEONECROSIS [None]
